FAERS Safety Report 7247693-1 (Version None)
Quarter: 2011Q1

REPORT INFORMATION
  Report Type: 
  Country: None (occurrence: None)
  Receive Date: 20110127
  Receipt Date: 20110120
  Transmission Date: 20110831
  Serious: Yes (Life-Threatening, Hospitalization, Other)
  Sender: FDA-Public Use
  Company Number: US-JNJFOC-20101201854

PATIENT
  Age: 67 Year
  Sex: Female

DRUGS (8)
  1. LEVOTHYROXINE SODIUM [Concomitant]
     Indication: HYPOTHYROIDISM
     Route: 065
  2. CANDESARTAN CILEXETIL [Concomitant]
     Indication: HYPERTENSION
     Route: 065
  3. ABT-888 [Suspect]
     Indication: OVARIAN CANCER
     Route: 048
  4. DOXORUBICIN HYDROCHLORIDE [Suspect]
     Route: 042
  5. DOXORUBICIN HYDROCHLORIDE [Suspect]
     Indication: OVARIAN CANCER
     Route: 042
  6. DOCUSATE [Concomitant]
     Indication: CONSTIPATION
     Route: 065
  7. TEMOZOLOMIDE [Suspect]
     Indication: OVARIAN CANCER
     Route: 048
  8. PYRIDOXINE HYDROCHLORIDE [Concomitant]
     Indication: ROUTINE HEALTH MAINTENANCE
     Route: 065

REACTIONS (7)
  - FEBRILE NEUTROPENIA [None]
  - BONE MARROW FAILURE [None]
  - THROMBOCYTOPENIA [None]
  - RECTAL HAEMORRHAGE [None]
  - BACTERAEMIA [None]
  - LEUKOPENIA [None]
  - HYPOTENSION [None]
